FAERS Safety Report 4489134-3 (Version None)
Quarter: 2004Q4

REPORT INFORMATION
  Report Type: 
  Country: None (occurrence: None)
  Receive Date: 20041029
  Receipt Date: 20041020
  Transmission Date: 20050328
  Serious: Yes (Life-Threatening, Hospitalization, Disabling)
  Sender: FDA-Public Use
  Company Number: US-MERCK-0410USA03155

PATIENT
  Age: 65 Year
  Sex: Male

DRUGS (7)
  1. VIOXX [Suspect]
     Indication: ARTHRITIS
     Route: 048
     Dates: start: 20020101, end: 20030401
  2. METFORMIN [Concomitant]
     Route: 065
  3. ISOSORBIDE [Concomitant]
     Route: 065
  4. ZOCOR [Concomitant]
     Route: 048
  5. ATENOLOL [Concomitant]
     Route: 065
  6. ETODOLAC [Concomitant]
     Route: 065
  7. NITROGLYCERIN [Concomitant]
     Route: 065

REACTIONS (3)
  - CORONARY ARTERY DISEASE [None]
  - MYOCARDIAL INFARCTION [None]
  - POOR PERIPHERAL CIRCULATION [None]
